FAERS Safety Report 4604098-7 (Version None)
Quarter: 2005Q1

REPORT INFORMATION
  Report Type: 
  Country: None (occurrence: None)
  Receive Date: 20050309
  Receipt Date: 20050309
  Transmission Date: 20050727
  Serious: Yes (Death)
  Sender: FDA-Public Use
  Company Number: None

PATIENT
  Age: 84 Year
  Sex: Female
  Weight: 40.9 kg

DRUGS (6)
  1. DOCETAXEL [Suspect]
     Indication: NON-SMALL CELL LUNG CANCER STAGE IV
     Dosage: 100 MG   Q21 DAYS  INTRAVENOU
     Route: 042
     Dates: start: 20041229, end: 20050305
  2. IRESSA [Suspect]
     Indication: NON-SMALL CELL LUNG CANCER STAGE IV
     Dosage: 250MG  QD   ORAL
     Route: 048
     Dates: start: 20041229, end: 20050305
  3. POTASSIUM CHLORIDE [Concomitant]
  4. LASIX [Concomitant]
  5. MAVIK [Concomitant]
  6. ATENOLOL [Concomitant]

REACTIONS (1)
  - DIARRHOEA [None]
